FAERS Safety Report 7345504-7 (Version None)
Quarter: 2011Q1

REPORT INFORMATION
  Report Type: 
  Country: None (occurrence: None)
  Receive Date: 20110310
  Receipt Date: 20110228
  Transmission Date: 20110831
  Serious: Yes (Hospitalization, Other)
  Sender: FDA-Public Use
  Company Number: US-ASTRAZENECA-2009UW01868

PATIENT
  Age: 53 Year
  Sex: Female

DRUGS (3)
  1. PRILOSEC [Suspect]
     Route: 048
  2. NEXIUM [Suspect]
     Route: 048
  3. NEXIUM [Suspect]
     Route: 048

REACTIONS (17)
  - HAEMORRHAGE [None]
  - UPPER GASTROINTESTINAL HAEMORRHAGE [None]
  - VOMITING [None]
  - DRUG DOSE OMISSION [None]
  - DYSPHAGIA [None]
  - HOSPITALISATION [None]
  - LOSS OF EMPLOYMENT [None]
  - LOWER GASTROINTESTINAL HAEMORRHAGE [None]
  - ABDOMINAL PAIN UPPER [None]
  - MALAISE [None]
  - STRESS [None]
  - GASTROINTESTINAL HAEMORRHAGE [None]
  - PAIN [None]
  - GASTRIC ULCER [None]
  - CHEST PAIN [None]
  - DYSPNOEA [None]
  - ENDOSCOPY [None]
